FAERS Safety Report 25005926 (Version 1)
Quarter: 2025Q1

REPORT INFORMATION
  Report Type: Spontaneous
  Country: US (occurrence: None)
  Receive Date: 20250224
  Receipt Date: 20250224
  Transmission Date: 20250408
  Serious: Yes (Death, Hospitalization, Other)
  Sender: INCYTE
  Company Number: US-INCYTE CORPORATION-2025IN002023

PATIENT
  Age: 72 Year

DRUGS (5)
  1. JAKAFI [Suspect]
     Active Substance: RUXOLITINIB
     Indication: Polycythaemia vera
     Dosage: 20 MILLIGRAM, BID
  2. JAKAFI [Suspect]
     Active Substance: RUXOLITINIB
     Dosage: 20 MILLIGRAM, QOD
  3. JAKAFI [Suspect]
     Active Substance: RUXOLITINIB
     Dosage: 10 MILLIGRAM, QD
  4. PEMBROLIZUMAB [Suspect]
     Active Substance: PEMBROLIZUMAB
     Indication: Immunoglobulin therapy
     Route: 065
  5. INTERFERON ALFA NOS [Concomitant]
     Active Substance: INTERFERON ALFA-2A OR INTERFERON ALFA-2B
     Indication: Polycythaemia vera
     Route: 065

REACTIONS (8)
  - Death [Fatal]
  - Skin squamous cell carcinoma recurrent [Recovering/Resolving]
  - Metastases to lung [Recovered/Resolved]
  - Pneumonia [Unknown]
  - Stomatitis [Recovering/Resolving]
  - Positron emission tomogram abnormal [Recovered/Resolved]
  - Post procedural infection [Unknown]
  - Pulmonary mass [Recovered/Resolved]
